FAERS Safety Report 20216458 (Version 1)
Quarter: 2021Q4

REPORT INFORMATION
  Report Type: Spontaneous
  Country: CN (occurrence: None)
  Receive Date: 20211222
  Receipt Date: 20211222
  Transmission Date: 20220303
  Serious: Yes (Other)
  Sender: FDA-Public Use
  Company Number: CN-ROCHE-2982438

PATIENT
  Age: 53 Year
  Sex: Female

DRUGS (45)
  1. GAZYVA [Suspect]
     Active Substance: OBINUTUZUMAB
     Indication: Mantle cell lymphoma
     Route: 042
     Dates: start: 20211008
  2. GAZYVA [Suspect]
     Active Substance: OBINUTUZUMAB
     Indication: Leukaemia
     Route: 042
     Dates: start: 20211105
  3. GAZYVA [Suspect]
     Active Substance: OBINUTUZUMAB
     Route: 042
     Dates: start: 20211201
  4. MABTHERA [Suspect]
     Active Substance: RITUXIMAB
     Indication: Mantle cell lymphoma
     Dosage: R-CHOP
     Route: 065
     Dates: start: 20170328
  5. MABTHERA [Suspect]
     Active Substance: RITUXIMAB
     Indication: Leukaemia
     Dosage: R-HYPER-CVAD-B
     Route: 065
     Dates: start: 20170425
  6. MABTHERA [Suspect]
     Active Substance: RITUXIMAB
     Dosage: R2-DHAP
     Route: 065
     Dates: start: 20170602
  7. MABTHERA [Suspect]
     Active Substance: RITUXIMAB
     Dosage: R2-CHOP
     Route: 065
     Dates: start: 20170907
  8. MABTHERA [Suspect]
     Active Substance: RITUXIMAB
     Dosage: R2-DHAP
     Route: 065
     Dates: start: 20171015
  9. MABTHERA [Suspect]
     Active Substance: RITUXIMAB
     Indication: Mantle cell lymphoma
     Dosage: R2-DHAP
     Route: 041
     Dates: start: 20171015
  10. MABTHERA [Suspect]
     Active Substance: RITUXIMAB
     Indication: Leukaemia
  11. IBRUTINIB [Concomitant]
     Active Substance: IBRUTINIB
     Indication: Mantle cell lymphoma
     Dosage: IR
     Dates: start: 20190708
  12. IBRUTINIB [Concomitant]
     Active Substance: IBRUTINIB
     Indication: Leukaemia
  13. CYCLOPHOSPHAMIDE [Concomitant]
     Active Substance: CYCLOPHOSPHAMIDE
     Indication: Mantle cell lymphoma
     Dosage: R-CHOP
     Dates: start: 20170328
  14. CYCLOPHOSPHAMIDE [Concomitant]
     Active Substance: CYCLOPHOSPHAMIDE
     Indication: Leukaemia
     Dosage: R-HYPER-CVAD-B
     Dates: start: 20170425
  15. CYCLOPHOSPHAMIDE [Concomitant]
     Active Substance: CYCLOPHOSPHAMIDE
     Dosage: R2-CHOP
     Dates: start: 20170907
  16. VINCRISTINE [Concomitant]
     Active Substance: VINCRISTINE
     Indication: Mantle cell lymphoma
     Dosage: R-CHOP
     Dates: start: 20170328
  17. VINCRISTINE [Concomitant]
     Active Substance: VINCRISTINE
     Indication: Leukaemia
     Dosage: R-HYPER-CVAD-B
     Dates: start: 20170425
  18. VINCRISTINE [Concomitant]
     Active Substance: VINCRISTINE
     Dosage: R2-CHOP
     Dates: start: 20170907
  19. PREDNISONE [Concomitant]
     Active Substance: PREDNISONE
     Indication: Mantle cell lymphoma
     Dosage: R-CHOP
     Dates: start: 20170328
  20. PREDNISONE [Concomitant]
     Active Substance: PREDNISONE
     Indication: Leukaemia
     Dosage: R-HYPER-CVAD-B
     Dates: start: 20170425
  21. PREDNISONE [Concomitant]
     Active Substance: PREDNISONE
     Dosage: R2-CHOP
     Dates: start: 20170907
  22. METHOTREXATE [Concomitant]
     Active Substance: METHOTREXATE
     Indication: Mantle cell lymphoma
     Dosage: R-HYPER-CVAD-B
     Dates: start: 20170425
  23. METHOTREXATE [Concomitant]
     Active Substance: METHOTREXATE
     Indication: Leukaemia
  24. CYTARABINE [Concomitant]
     Active Substance: CYTARABINE
     Indication: Mantle cell lymphoma
     Dosage: R-HYPER-CVAD-B
     Dates: start: 20170425
  25. CYTARABINE [Concomitant]
     Active Substance: CYTARABINE
     Indication: Leukaemia
     Dosage: R2-DHAP
     Dates: start: 20170602
  26. CYTARABINE [Concomitant]
     Active Substance: CYTARABINE
     Dosage: R2-DHAP
     Dates: start: 20171015
  27. LENALIDOMIDE [Concomitant]
     Active Substance: LENALIDOMIDE
     Indication: Mantle cell lymphoma
     Dosage: R2-DHAP
     Dates: start: 20170602
  28. LENALIDOMIDE [Concomitant]
     Active Substance: LENALIDOMIDE
     Indication: Leukaemia
     Dosage: R2-CHOP
     Dates: start: 20170907
  29. LENALIDOMIDE [Concomitant]
     Active Substance: LENALIDOMIDE
     Dosage: R2-DHAP
     Dates: start: 20171015
  30. CISPLATIN [Concomitant]
     Active Substance: CISPLATIN
     Indication: Mantle cell lymphoma
     Dosage: R2-DHAP
     Dates: start: 20170602
  31. CISPLATIN [Concomitant]
     Active Substance: CISPLATIN
     Indication: Leukaemia
     Dosage: R2-DHAP
     Dates: start: 20171015
  32. VENETOCLAX [Concomitant]
     Active Substance: VENETOCLAX
     Indication: Mantle cell lymphoma
     Dates: start: 20210930
  33. VENETOCLAX [Concomitant]
     Active Substance: VENETOCLAX
     Indication: Leukaemia
     Dates: start: 20211001
  34. VENETOCLAX [Concomitant]
     Active Substance: VENETOCLAX
     Dosage: 50 MG D4-8, 100 MG D9 ~ 17
     Dates: start: 20211105
  35. VENETOCLAX [Concomitant]
     Active Substance: VENETOCLAX
     Dates: start: 20211201
  36. BENDAMUSTINE [Concomitant]
     Active Substance: BENDAMUSTINE
     Indication: Mantle cell lymphoma
     Dates: start: 20211105
  37. BENDAMUSTINE [Concomitant]
     Active Substance: BENDAMUSTINE
     Indication: Leukaemia
     Dates: start: 20211201
  38. VITAMIN B1 [Concomitant]
     Active Substance: THIAMINE HYDROCHLORIDE
     Indication: Mantle cell lymphoma
     Dates: start: 20211006
  39. VITAMIN B1 [Concomitant]
     Active Substance: THIAMINE HYDROCHLORIDE
     Indication: Leukaemia
  40. DOXORUBICIN [Concomitant]
     Active Substance: DOXORUBICIN
     Indication: Mantle cell lymphoma
     Dosage: R-CHOP
     Dates: start: 20170328
  41. DOXORUBICIN [Concomitant]
     Active Substance: DOXORUBICIN
     Indication: Leukaemia
     Dosage: R-HYPER-CVAD-B
     Dates: start: 20170425
  42. DOXORUBICIN [Concomitant]
     Active Substance: DOXORUBICIN
     Dosage: R2-CHOP
     Dates: start: 20170907
  43. DEXAMETHASONE [Concomitant]
     Active Substance: DEXAMETHASONE
     Indication: Mantle cell lymphoma
     Dosage: R-HYPER-CVAD-B
     Dates: start: 20170425
  44. DEXAMETHASONE [Concomitant]
     Active Substance: DEXAMETHASONE
     Indication: Leukaemia
     Dosage: R2-DHAP
     Dates: start: 20170602
  45. DEXAMETHASONE [Concomitant]
     Active Substance: DEXAMETHASONE
     Dosage: R2-DHAP
     Dates: start: 20171015

REACTIONS (10)
  - Agranulocytosis [Unknown]
  - White blood cell count decreased [Unknown]
  - Platelet count decreased [Recovering/Resolving]
  - Pyrexia [Unknown]
  - Disease recurrence [Unknown]
  - Rash [Unknown]
  - Chest discomfort [Unknown]
  - Cholecystitis [Unknown]
  - Ventricular extrasystoles [Unknown]
  - Off label use [Unknown]
